FAERS Safety Report 7518333-9 (Version None)
Quarter: 2011Q2

REPORT INFORMATION
  Report Type: 
  Country: None (occurrence: None)
  Receive Date: 20110602
  Receipt Date: 20090412
  Transmission Date: 20111010
  Serious: Yes (Death, Other)
  Sender: FDA-Public Use
  Company Number: US-BAYER-200917945NA

PATIENT
  Weight: 87 kg

DRUGS (10)
  1. LASIX [Concomitant]
     Dosage: 40MG TWICE DAILY
     Route: 048
     Dates: start: 20000510
  2. HEPARIN [Concomitant]
     Dosage: UNK
     Route: 042
     Dates: start: 20030117, end: 20030117
  3. TRASYLOL [Suspect]
     Indication: CORONARY ARTERY BYPASS
     Dosage: INITIAL TEST DOSE OF 1 ML
     Route: 042
     Dates: start: 20030117, end: 20030117
  4. HUMALOG [Concomitant]
     Dosage: 40UNITS MORNING AND 20UNITS IN EVENING
     Route: 058
  5. ACETYLSALICYLIC ACID SRT [Concomitant]
     Dosage: 325MG ONCE DAILY
     Route: 048
  6. ATENOLOL [Concomitant]
     Dosage: 25MG TWICE DAILY
     Route: 048
     Dates: start: 20000101
  7. PROTAMINE SULFATE [Concomitant]
     Dosage: UNK
     Route: 042
     Dates: start: 20030117, end: 20030117
  8. NITROGLYCERIN [Concomitant]
     Dosage: 0.4MG AS NECESSARY
     Route: 060
  9. LIPITOR [Concomitant]
     Dosage: 10MG ONCE DAILY
     Route: 048
  10. TRASYLOL [Suspect]
     Dosage: LOADING DOSE OF 200ML
     Route: 042
     Dates: start: 20030117, end: 20030117

REACTIONS (11)
  - EMOTIONAL DISTRESS [None]
  - MULTI-ORGAN FAILURE [None]
  - RENAL FAILURE [None]
  - RENAL IMPAIRMENT [None]
  - FEAR [None]
  - STRESS [None]
  - ANXIETY [None]
  - RENAL INJURY [None]
  - DEATH [None]
  - UNEVALUABLE EVENT [None]
  - PAIN [None]
